FAERS Safety Report 4995041-X (Version None)
Quarter: 2006Q2

REPORT INFORMATION
  Report Type: 
  Country: None (occurrence: None)
  Receive Date: 20060508
  Receipt Date: 20060426
  Transmission Date: 20061013
  Serious: Yes (Hospitalization)
  Sender: FDA-Public Use
  Company Number: 06P-167-0330910-00

PATIENT
  Age: 64 Year
  Sex: Female

DRUGS (6)
  1. DIGOXIN [Suspect]
     Route: 065
  2. SOTALOL HCL [Suspect]
     Route: 065
  3. VERAPAMIL [Suspect]
     Dosage: 80MG PER DAY
     Route: 065
  4. WARFARIN SODIUM [Concomitant]
     Route: 065
  5. CO-AMILOFRUSE (FRUMIL) [Concomitant]
     Route: 065
  6. PERINDOPRIL [Concomitant]
     Route: 065

REACTIONS (9)
  - ABDOMINAL TENDERNESS [None]
  - ANURIA [None]
  - BLOOD PRESSURE DECREASED [None]
  - BRADYCARDIA [None]
  - DRUG INTERACTION [None]
  - GLASGOW COMA SCALE ABNORMAL [None]
  - HEART RATE INCREASED [None]
  - HYPOTENSION [None]
  - METABOLIC ACIDOSIS [None]
